FAERS Safety Report 9099679 (Version 2)
Quarter: 2013Q1

REPORT INFORMATION
  Report Type: Spontaneous
  Country: US (occurrence: US)
  Receive Date: 20130214
  Receipt Date: 20130314
  Transmission Date: 20140127
  Serious: No
  Sender: FDA-Public Use
  Company Number: US-TEVA-386139USA

PATIENT
  Age: 58 Year
  Sex: Female

DRUGS (3)
  1. QVAR [Suspect]
     Indication: ASTHMA
     Dosage: 2 ML DAILY; BID
     Dates: start: 201210, end: 20130108
  2. LORATADINE [Concomitant]
  3. ALBUTEROL [Concomitant]
     Dates: start: 201202

REACTIONS (3)
  - Lung disorder [Recovered/Resolved]
  - Dyspnoea [Recovered/Resolved]
  - Chest discomfort [Recovered/Resolved]
